FAERS Safety Report 5485090-X (Version None)
Quarter: 2007Q4

REPORT INFORMATION
  Report Type: 
  Country: None (occurrence: None)
  Receive Date: 20071015
  Receipt Date: 20071009
  Transmission Date: 20080405
  Serious: Yes (Other)
  Sender: FDA-Public Use
  Company Number: PHBS2007EE16798

PATIENT
  Age: 9 Year
  Sex: Male

DRUGS (5)
  1. TRILEPTAL [Suspect]
     Indication: EPILEPSY
     Dosage: 150 MG, BID
     Dates: start: 20070927
  2. TRILEPTAL [Suspect]
     Dosage: 225 MG, BID
     Dates: start: 20070930, end: 20071002
  3. TRILEPTAL [Suspect]
     Dosage: 300 MG, BID
     Dates: start: 20071003, end: 20071005
  4. TRILEPTAL [Suspect]
     Dosage: 450 MG, BID
     Dates: start: 20071006
  5. TRILEPTAL [Suspect]
     Dosage: 75 MG, BID
     Route: 065
     Dates: start: 20070924, end: 20070926

REACTIONS (5)
  - ABASIA [None]
  - ASTHENIA [None]
  - LOSS OF CONSCIOUSNESS [None]
  - SOMNOLENCE [None]
  - VOMITING [None]
